FAERS Safety Report 5477797-5 (Version None)
Quarter: 2007Q4

REPORT INFORMATION
  Report Type: 
  Country: None (occurrence: None)
  Receive Date: 20071002
  Receipt Date: 20070913
  Transmission Date: 20080405
  Serious: Yes (Death)
  Sender: FDA-Public Use
  Company Number: 2007EU002044

PATIENT
  Sex: Male

DRUGS (4)
  1. PROGRAF [Suspect]
     Indication: IMMUNOSUPPRESSION
  2. SIMULECT [Concomitant]
  3. CORTICOSTEROIDS [Concomitant]
  4. CELLCEPT [Concomitant]

REACTIONS (2)
  - LUNG DISORDER [None]
  - LYMPHOMA [None]
